FAERS Safety Report 8127404-8 (Version None)
Quarter: 2012Q1

REPORT INFORMATION
  Report Type: 
  Country: None (occurrence: None)
  Receive Date: 20120210
  Receipt Date: 20120206
  Transmission Date: 20120608
  Serious: Yes (Other)
  Sender: FDA-Public Use
  Company Number: JP-JNJFOC-20111207455

PATIENT
  Sex: Male

DRUGS (12)
  1. LYRICA [Concomitant]
     Route: 048
  2. LYRICA [Concomitant]
     Route: 048
  3. TRAMADOL HYDROCHLORIDE AND ACETAMINOPHEN [Suspect]
     Dosage: 1 PER DAY
     Route: 048
     Dates: start: 20111201, end: 20120125
  4. TRAMADOL HYDROCHLORIDE AND ACETAMINOPHEN [Suspect]
     Indication: PAIN IN EXTREMITY
     Dosage: 1 PER DAY
     Route: 048
     Dates: start: 20111201, end: 20111201
  5. TRAMADOL HYDROCHLORIDE AND ACETAMINOPHEN [Suspect]
     Indication: PAIN
     Dosage: 1 PER DAY
     Route: 048
     Dates: start: 20111201, end: 20111201
  6. TRAMADOL HYDROCHLORIDE AND ACETAMINOPHEN [Suspect]
     Dosage: 3 DF X 1 PER 1 DAY
     Route: 048
     Dates: start: 20111101, end: 20111201
  7. TRAMADOL HYDROCHLORIDE AND ACETAMINOPHEN [Suspect]
     Dosage: 1 PER DAY
     Route: 048
     Dates: start: 20111201, end: 20120125
  8. LYRICA [Concomitant]
     Indication: PAIN IN EXTREMITY
     Route: 048
  9. TRAMADOL HYDROCHLORIDE AND ACETAMINOPHEN [Suspect]
     Route: 048
     Dates: start: 20111001
  10. LYRICA [Concomitant]
     Indication: PAIN
     Route: 048
  11. TRAMADOL HYDROCHLORIDE AND ACETAMINOPHEN [Suspect]
     Dosage: 3 DF X 1 PER 1 DAY
     Route: 048
     Dates: start: 20111101, end: 20111201
  12. TRAMADOL HYDROCHLORIDE AND ACETAMINOPHEN [Suspect]
     Route: 048
     Dates: start: 20111001

REACTIONS (2)
  - DYSPNOEA [None]
  - SINOATRIAL BLOCK [None]
